FAERS Safety Report 16464271 (Version 1)
Quarter: 2019Q3

REPORT INFORMATION
  Report Type: Spontaneous
  Country: US (occurrence: US)
  Receive Date: 20190620
  Receipt Date: 20190620
  Transmission Date: 20191004
  Serious: No
  Sender: FDA-Public Use
  Company Number: None

PATIENT
  Age: 80 Year
  Weight: 81 kg

DRUGS (1)
  1. MULTIHANCE [Suspect]
     Active Substance: GADOBENATE DIMEGLUMINE
     Indication: NUCLEAR MAGNETIC RESONANCE IMAGING
     Dosage: ?          OTHER FREQUENCY:ONE TIME ADMINISTR;?
     Route: 042

REACTIONS (7)
  - Skin texture abnormal [None]
  - Peripheral swelling [None]
  - Arthralgia [None]
  - Burning sensation [None]
  - Skin discolouration [None]
  - Joint swelling [None]
  - Heart rate increased [None]

NARRATIVE: CASE EVENT DATE: 20190415
